FAERS Safety Report 20874935 (Version 2)
Quarter: 2022Q3

REPORT INFORMATION
  Report Type: Spontaneous
  Country: US (occurrence: US)
  Receive Date: 20220526
  Receipt Date: 20220826
  Transmission Date: 20221027
  Serious: Yes (Other)
  Sender: FDA-Public Use
  Company Number: US-BANNER LIFE SCIENCES, LLC-2022BAN000110

PATIENT

DRUGS (1)
  1. BAFIERTAM [Suspect]
     Active Substance: MONOMETHYL FUMARATE
     Indication: Relapsing-remitting multiple sclerosis
     Dosage: UNK
     Dates: start: 202109

REACTIONS (2)
  - Brain abscess [Unknown]
  - Central nervous system fungal infection [Unknown]
